FAERS Safety Report 7380636-9 (Version None)
Quarter: 2011Q1

REPORT INFORMATION
  Report Type: 
  Country: None (occurrence: None)
  Receive Date: 20110329
  Receipt Date: 20110317
  Transmission Date: 20110831
  Serious: Yes (Death, Hospitalization)
  Sender: FDA-Public Use
  Company Number: US-ACTELION-A-US2011-44946

PATIENT

DRUGS (2)
  1. TRACLEER [Suspect]
     Indication: PULMONARY ARTERIAL HYPERTENSION
     Dosage: UNK
     Route: 048
     Dates: start: 20080220, end: 20110218
  2. SILDENAFIL CITRATE [Concomitant]

REACTIONS (4)
  - DISEASE PROGRESSION [None]
  - BRADYCARDIA [None]
  - SYSTEMIC SCLEROSIS [None]
  - HIP FRACTURE [None]
